FAERS Safety Report 20454030 (Version 1)
Quarter: 2022Q1

REPORT INFORMATION
  Report Type: Spontaneous
  Country: GB (occurrence: GB)
  Receive Date: 20220210
  Receipt Date: 20220210
  Transmission Date: 20220423
  Serious: No
  Sender: FDA-Public Use
  Company Number: None

PATIENT

DRUGS (20)
  1. AMOXICILLIN\CLAVULANATE POTASSIUM [Suspect]
     Active Substance: AMOXICILLIN\CLAVULANATE POTASSIUM
     Indication: Pulmonary tuberculosis
     Dosage: 375 MILLIGRAM, BID
     Route: 048
     Dates: start: 20201210, end: 20210118
  2. LINEZOLID [Suspect]
     Active Substance: LINEZOLID
     Indication: Pulmonary tuberculosis
     Dosage: 600 MILLIGRAMS DAILY
     Route: 048
  3. AMINOSALICYLIC ACID [Suspect]
     Active Substance: AMINOSALICYLIC ACID
     Indication: Pulmonary tuberculosis
     Dosage: 2G IN THE MORNING, 4G AT NIGHT
     Route: 048
     Dates: start: 20210116
  4. BEDAQUILINE FUMARATE [Suspect]
     Active Substance: BEDAQUILINE FUMARATE
     Indication: Pulmonary tuberculosis
     Dosage: 200 MILLIGRAMS DAILY (ON A MONDAY, WEDNESDAY AND FRIDAY)
     Route: 048
     Dates: start: 20201203
  5. COLISTIMETHATE SODIUM [Suspect]
     Active Substance: COLISTIMETHATE SODIUM
     Indication: Pulmonary tuberculosis
     Dosage: 2 MILLION UNITS THREE TIMES DAILY OVER 5-10 MINUTES
     Route: 048
     Dates: start: 20210102
  6. CYCLOSERINE [Suspect]
     Active Substance: CYCLOSERINE
     Indication: Pulmonary tuberculosis
     Dosage: 250 MILLIGRAM, BID
     Route: 048
  7. DELAMANID [Suspect]
     Active Substance: DELAMANID
     Indication: Pulmonary tuberculosis
     Dosage: 200 MILLIGRAMS DAILY
     Route: 048
  8. MEROPENEM [Suspect]
     Active Substance: MEROPENEM
     Indication: Pulmonary tuberculosis
     Dosage: 1 GRAM, TID
     Route: 042
     Dates: start: 20201209, end: 20210118
  9. PYRIDOXINE [Suspect]
     Active Substance: PYRIDOXINE
     Indication: Pulmonary tuberculosis
     Dosage: 100 MILLIGRAMS DAILY
     Route: 048
     Dates: start: 20191202
  10. CHLORPHENIRAMINE MALEATE [Concomitant]
     Active Substance: CHLORPHENIRAMINE MALEATE
     Indication: Ill-defined disorder
     Dosage: UNK
     Route: 065
  11. CYCLIZINE [Concomitant]
     Active Substance: CYCLIZINE
     Indication: Ill-defined disorder
     Dosage: UNK
     Route: 065
  12. HYDROCORTISONE [Concomitant]
     Active Substance: HYDROCORTISONE
     Indication: Ill-defined disorder
     Dosage: UNK
     Route: 065
  13. IOHEXOL [Concomitant]
     Active Substance: IOHEXOL
     Indication: Ill-defined disorder
     Dosage: UNK
     Route: 065
  14. LACTULOSE [Concomitant]
     Active Substance: LACTULOSE
     Indication: Ill-defined disorder
     Dosage: UNK
     Route: 065
  15. LOPERAMIDE [Concomitant]
     Active Substance: LOPERAMIDE
     Indication: Ill-defined disorder
     Dosage: UNK
     Route: 065
  16. OLANZAPINE [Concomitant]
     Active Substance: OLANZAPINE
     Indication: Ill-defined disorder
     Dosage: UNK
     Route: 065
  17. ACETAMINOPHEN [Concomitant]
     Active Substance: ACETAMINOPHEN
     Indication: Ill-defined disorder
     Dosage: UNK
     Route: 065
  18. Roberts Multivitamin and Mineral [Concomitant]
     Indication: Ill-defined disorder
     Dosage: UNK
     Route: 065
  19. THIAMINE [Concomitant]
     Active Substance: THIAMINE
     Indication: Ill-defined disorder
     Dosage: UNK
     Route: 065
  20. Vitamin B Complex Strong [Concomitant]
     Indication: Ill-defined disorder
     Dosage: UNK
     Route: 065

REACTIONS (2)
  - Eosinophil count increased [Not Recovered/Not Resolved]
  - Pruritus [Not Recovered/Not Resolved]

NARRATIVE: CASE EVENT DATE: 20210117
